FAERS Safety Report 16120507 (Version 1)
Quarter: 2019Q1

REPORT INFORMATION
  Report Type: Report from Study
  Country: None (occurrence: CA)
  Receive Date: 20190326
  Receipt Date: 20190326
  Transmission Date: 20190418
  Serious: Yes (Other)
  Sender: FDA-Public Use
  Company Number: CA-ABBVIE-19K-028-2717609-00

PATIENT
  Sex: Female

DRUGS (1)
  1. HUMIRA [Suspect]
     Active Substance: ADALIMUMAB
     Indication: HIDRADENITIS
     Route: 058
     Dates: end: 20190220

REACTIONS (8)
  - Surgical failure [Unknown]
  - Furuncle [Not Recovered/Not Resolved]
  - Metabolic surgery [Unknown]
  - Adverse food reaction [Unknown]
  - Stress [Not Recovered/Not Resolved]
  - Furuncle [Not Recovered/Not Resolved]
  - Wound infection [Not Recovered/Not Resolved]
  - Vomiting [Unknown]

NARRATIVE: CASE EVENT DATE: 2012
